FAERS Safety Report 24200646 (Version 1)
Quarter: 2024Q3

REPORT INFORMATION
  Report Type: Spontaneous
  Country: US (occurrence: US)
  Receive Date: 20240812
  Receipt Date: 20240812
  Transmission Date: 20241016
  Serious: No
  Sender: ANI
  Company Number: US-ANIPHARMA-2024-US-034698

PATIENT
  Sex: Female

DRUGS (22)
  1. CORTICOTROPIN [Suspect]
     Active Substance: CORTICOTROPIN
     Indication: Multiple sclerosis
     Dosage: 80 UNITS DAILY
     Route: 058
  2. METHOCARBAMOL [Concomitant]
     Active Substance: METHOCARBAMOL
  3. BUMETANIDE [Concomitant]
     Active Substance: BUMETANIDE
  4. BACLOFEN [Concomitant]
     Active Substance: BACLOFEN
  5. PERCOCET [Concomitant]
     Active Substance: ACETAMINOPHEN\OXYCODONE HYDROCHLORIDE
  6. CARISOPRODOL [Concomitant]
     Active Substance: CARISOPRODOL
  7. ESTRADIOL VALERATE [Concomitant]
     Active Substance: ESTRADIOL VALERATE
  8. ESZOPICLONE [Concomitant]
     Active Substance: ESZOPICLONE
  9. POTASSIUM [Concomitant]
     Active Substance: POTASSIUM
  10. SIMVASTATIN [Concomitant]
     Active Substance: SIMVASTATIN
  11. DIALYVITE [Concomitant]
     Active Substance: ASCORBIC ACID\BIOTIN\CALCIUM PANTOTHENATE\COBALAMIN\FOLIC ACID\NIACINAMIDE\PYRIDOXINE HYDROCHLORIDE\
  12. PROBIOTICS NOS [Concomitant]
     Active Substance: PROBIOTICS NOS
  13. VITAMIN D3 MAX [Concomitant]
  14. LEVOTHYROXINE SODIUM [Concomitant]
     Active Substance: LEVOTHYROXINE SODIUM
  15. XANAX XR [Concomitant]
     Active Substance: ALPRAZOLAM
  16. VALACYCLOVIR HYDROCHLORIDE [Concomitant]
     Active Substance: VALACYCLOVIR HYDROCHLORIDE
  17. GABAPENTIN [Concomitant]
     Active Substance: GABAPENTIN
  18. MODAFINIL [Concomitant]
     Active Substance: MODAFINIL
  19. OXYBUTYNIN CHLORIDE [Concomitant]
     Active Substance: OXYBUTYNIN CHLORIDE
  20. FLUOXETINE HYDROCHLORIDE [Concomitant]
     Active Substance: FLUOXETINE HYDROCHLORIDE
  21. DALFAMPRIDINE [Concomitant]
     Active Substance: DALFAMPRIDINE
  22. COLESEVELAM HYDROCHLORIDE [Concomitant]
     Active Substance: COLESEVELAM HYDROCHLORIDE

REACTIONS (1)
  - Injection site irritation [Unknown]
